FAERS Safety Report 22376437 (Version 1)
Quarter: 2023Q2

REPORT INFORMATION
  Report Type: Spontaneous
  Country: ES (occurrence: ES)
  Receive Date: 20230527
  Receipt Date: 20230527
  Transmission Date: 20230722
  Serious: Yes (Death, Hospitalization, Other)
  Sender: FDA-Public Use
  Company Number: ES-AEMPS-1369843

PATIENT
  Age: 76 Year
  Sex: Female

DRUGS (1)
  1. CARVEDILOL [Suspect]
     Active Substance: CARVEDILOL
     Indication: Product used for unknown indication
     Dosage: 25 MILLIGRAM
     Route: 048
     Dates: start: 20230120, end: 20230122

REACTIONS (3)
  - Sinus bradycardia [Fatal]
  - Syncope [Fatal]
  - Product prescribing error [Fatal]

NARRATIVE: CASE EVENT DATE: 20230120
